FAERS Safety Report 4580822-7 (Version None)
Quarter: 2005Q1

REPORT INFORMATION
  Report Type: 
  Country: None (occurrence: None)
  Receive Date: 20050214
  Receipt Date: 20040608
  Transmission Date: 20050727
  Serious: No
  Sender: FDA-Public Use
  Company Number: US-GLAXOSMITHKLINE-A0513815A

PATIENT
  Age: 38 Year
  Sex: Male

DRUGS (7)
  1. LAMICTAL [Suspect]
     Indication: BIPOLAR DISORDER
     Dosage: 50MG TWICE PER DAY
     Route: 048
  2. ESKALITH [Concomitant]
  3. SYNTHROID [Concomitant]
  4. EFFEXOR [Concomitant]
  5. AMBIEN [Concomitant]
  6. LORAZEPAM [Concomitant]
  7. VISTARIL [Concomitant]

REACTIONS (3)
  - BLOOD CREATINE PHOSPHOKINASE INCREASED [None]
  - ELECTROCARDIOGRAM CHANGE [None]
  - ELECTROLYTE IMBALANCE [None]
